FAERS Safety Report 9570892 (Version 2)
Quarter: 2013Q4

REPORT INFORMATION
  Report Type: Report from Study
  Country: US (occurrence: US)
  Receive Date: 20131001
  Receipt Date: 20131018
  Transmission Date: 20140711
  Serious: Yes (Hospitalization)
  Sender: FDA-Public Use
  Company Number: US-ROCHE-1281957

PATIENT
  Age: 50 Year
  Sex: Male
  Weight: 105.33 kg

DRUGS (6)
  1. AVASTIN [Suspect]
     Indication: COLORECTAL CANCER METASTATIC
     Route: 042
     Dates: start: 20130422, end: 20130722
  2. LOVENOX [Concomitant]
     Indication: ANTICOAGULANT THERAPY
     Route: 065
     Dates: start: 20130919, end: 20130923
  3. COUMADIN [Concomitant]
     Indication: ANTICOAGULANT THERAPY
     Route: 065
     Dates: start: 20120925
  4. FOLINIC ACID [Concomitant]
     Indication: COLORECTAL CANCER METASTATIC
     Route: 042
     Dates: start: 20130422, end: 20130722
  5. FLUOROURACIL [Concomitant]
     Indication: COLORECTAL CANCER METASTATIC
     Route: 042
     Dates: start: 20130422, end: 20130722
  6. OXALIPLATIN [Concomitant]
     Indication: COLORECTAL CANCER METASTATIC
     Route: 042
     Dates: start: 20130422, end: 20130722

REACTIONS (3)
  - Haemoptysis [Not Recovered/Not Resolved]
  - Blood urine present [Not Recovered/Not Resolved]
  - Coagulation time prolonged [Not Recovered/Not Resolved]
